FAERS Safety Report 8215055-6 (Version None)
Quarter: 2012Q1

REPORT INFORMATION
  Report Type: 
  Country: None (occurrence: None)
  Receive Date: 20120316
  Receipt Date: 20120306
  Transmission Date: 20120608
  Serious: Yes (Hospitalization, Other)
  Sender: FDA-Public Use
  Company Number: US-ELI_LILLY_AND_COMPANY-US201201008340

PATIENT
  Sex: Female

DRUGS (12)
  1. VITAMIN D [Concomitant]
  2. ALBUTEROL [Concomitant]
  3. FORTEO [Suspect]
     Dosage: UNK, UNKNOWN
     Route: 065
  4. PRAVASTATIN [Concomitant]
  5. FISH OIL [Concomitant]
  6. LISINOPRIL [Concomitant]
  7. PULMICORT [Concomitant]
  8. RANITIDINE [Concomitant]
  9. LEVOTHYROXINE SODIUM [Concomitant]
  10. ASPIRIN [Concomitant]
  11. FLONASE [Concomitant]
  12. LASIX [Concomitant]

REACTIONS (3)
  - PELVIC FRACTURE [None]
  - PUBIS FRACTURE [None]
  - FALL [None]
